FAERS Safety Report 12680340 (Version 1)
Quarter: 2016Q3

REPORT INFORMATION
  Report Type: Spontaneous
  Country: US (occurrence: None)
  Receive Date: 20160823
  Receipt Date: 20160823
  Transmission Date: 20161109
  Serious: Yes (Other)
  Sender: FDA-Public Use
  Company Number: None

PATIENT
  Age: 55 Year
  Sex: Male
  Weight: 83.2 kg

DRUGS (1)
  1. TRAMADOL. [Suspect]
     Active Substance: TRAMADOL
     Indication: PAIN
     Route: 048
     Dates: start: 20160620, end: 20160627

REACTIONS (6)
  - Homicidal ideation [None]
  - Impaired work ability [None]
  - Unevaluable event [None]
  - Drug ineffective [None]
  - Emotional disorder [None]
  - Suicidal ideation [None]

NARRATIVE: CASE EVENT DATE: 20160627
